FAERS Safety Report 10298381 (Version 1)
Quarter: 2014Q3

REPORT INFORMATION
  Report Type: Report from Study
  Country: MX (occurrence: MX)
  Receive Date: 20140711
  Receipt Date: 20140711
  Transmission Date: 20150326
  Serious: Yes (Death, Other)
  Sender: FDA-Public Use
  Company Number: PHHY2014MX085462

PATIENT
  Age: 87 Year
  Sex: Female

DRUGS (3)
  1. EXELON PATCH [Suspect]
     Active Substance: RIVASTIGMINE
     Indication: SENILE DEMENTIA
     Dosage: 4.5 MG, DAILY
     Route: 062
     Dates: start: 201404
  2. DIURETICS [Concomitant]
     Active Substance: UNSPECIFIED INGREDIENT
     Dosage: UNK UKN, UNK
  3. AKATINOL [Concomitant]
     Indication: SENILE DEMENTIA
     Dosage: UNK UKN, UNK

REACTIONS (8)
  - Senile dementia [Fatal]
  - Fluid imbalance [Fatal]
  - Terminal state [Unknown]
  - Aphasia [Unknown]
  - Eating disorder [Unknown]
  - General physical health deterioration [Unknown]
  - Renal failure [Fatal]
  - Memory impairment [Fatal]

NARRATIVE: CASE EVENT DATE: 20140505
